FAERS Safety Report 8444859-X (Version None)
Quarter: 2012Q2

REPORT INFORMATION
  Report Type: 
  Country: None (occurrence: None)
  Receive Date: 20120618
  Receipt Date: 20120613
  Transmission Date: 20120825
  Serious: Yes (Hospitalization)
  Sender: FDA-Public Use
  Company Number: PHHY2012TW040462

PATIENT
  Sex: Female
  Weight: 56 kg

DRUGS (4)
  1. ZOLEDRONOC ACID [Suspect]
     Route: 042
  2. ZOLEDRONOC ACID [Suspect]
     Route: 042
  3. ZOLEDRONOC ACID [Suspect]
     Route: 042
  4. ZOLEDRONOC ACID [Suspect]
     Route: 042

REACTIONS (1)
  - CHOLELITHIASIS [None]
